APPROVED DRUG PRODUCT: PROPARACAINE HYDROCHLORIDE
Active Ingredient: PROPARACAINE HYDROCHLORIDE
Strength: 0.5%
Dosage Form/Route: SOLUTION/DROPS;OPHTHALMIC
Application: A040074 | Product #001 | TE Code: AT
Applicant: BAUSCH AND LOMB PHARMACEUTICALS INC
Approved: Sep 29, 1995 | RLD: No | RS: Yes | Type: RX